FAERS Safety Report 4560789-8 (Version None)
Quarter: 2005Q1

REPORT INFORMATION
  Report Type: 
  Country: None (occurrence: None)
  Receive Date: 20050121
  Receipt Date: 20050111
  Transmission Date: 20050727
  Serious: Yes (Other)
  Sender: FDA-Public Use
  Company Number: S05-ESP-08313-01

PATIENT
  Age: 82 Year
  Sex: Female
  Weight: 52 kg

DRUGS (3)
  1. AXURA (MEMANTINE) [Suspect]
     Indication: DEMENTIA ALZHEIMER'S TYPE
     Dosage: 10 MG QD PO
     Route: 048
     Dates: start: 20040901, end: 20041001
  2. CITALOPRAM [Concomitant]
  3. ANTIHYPERTENSIVE [Concomitant]

REACTIONS (4)
  - AGGRESSION [None]
  - ANXIETY [None]
  - DELIRIUM [None]
  - EUPHORIC MOOD [None]
